FAERS Safety Report 9507705 (Version 2)
Quarter: 2013Q3

REPORT INFORMATION
  Report Type: Spontaneous
  Country: US (occurrence: US)
  Receive Date: 20130909
  Receipt Date: 20130909
  Transmission Date: 20140515
  Serious: No
  Sender: FDA-Public Use
  Company Number: US-TEVA-419066USA

PATIENT
  Sex: Male

DRUGS (2)
  1. CLARAVIS [Suspect]
     Route: 048
     Dates: start: 20101116, end: 2011
  2. AMOXICILLIN [Concomitant]

REACTIONS (3)
  - Dyspepsia [Recovered/Resolved]
  - Abdominal discomfort [Recovered/Resolved]
  - Abdominal pain upper [Recovered/Resolved]
